FAERS Safety Report 25254289 (Version 1)
Quarter: 2025Q2

REPORT INFORMATION
  Report Type: Spontaneous
  Country: TR (occurrence: TR)
  Receive Date: 20250430
  Receipt Date: 20250430
  Transmission Date: 20250716
  Serious: Yes (Hospitalization)
  Sender: NOVITIUM PHARMA
  Company Number: TR-NOVITIUMPHARMA-2025TRNVP01022

PATIENT
  Age: 8 Month
  Sex: Male

DRUGS (3)
  1. FLUDROCORTISONE ACETATE [Suspect]
     Active Substance: FLUDROCORTISONE ACETATE
     Indication: Adrenal insufficiency neonatal
  2. HYDROCORTISONE [Concomitant]
     Active Substance: HYDROCORTISONE
     Indication: Adrenal insufficiency neonatal
  3. SODIUM CHLORIDE [Concomitant]
     Active Substance: SODIUM CHLORIDE
     Indication: Adrenal insufficiency neonatal
     Route: 048

REACTIONS (3)
  - Renin decreased [Unknown]
  - Blood aldosterone increased [Unknown]
  - Laboratory test interference [Unknown]
